FAERS Safety Report 14931624 (Version 1)
Quarter: 2018Q2

REPORT INFORMATION
  Report Type: Spontaneous
  Country: US (occurrence: US)
  Receive Date: 20180524
  Receipt Date: 20180524
  Transmission Date: 20180711
  Serious: No
  Sender: FDA-Public Use
  Company Number: US-ACCORD-063038

PATIENT
  Age: 56 Year
  Sex: Female
  Weight: 95.25 kg

DRUGS (1)
  1. QUETIAPINE ACCORD [Suspect]
     Active Substance: QUETIAPINE
     Indication: INSOMNIA
     Dosage: STRENGTH: 300, 400?STARTED 2-3 WEEKS AGO
     Route: 048

REACTIONS (4)
  - Restless legs syndrome [Unknown]
  - Insomnia [Unknown]
  - Drug ineffective [Unknown]
  - Off label use [Unknown]
